FAERS Safety Report 17622245 (Version 1)
Quarter: 2020Q2

REPORT INFORMATION
  Report Type: Spontaneous
  Country: US (occurrence: US)
  Receive Date: 20200401
  Receipt Date: 20200401
  Transmission Date: 20200713
  Serious: No
  Sender: FDA-Public Use
  Company Number: None

PATIENT
  Age: 21 Year
  Sex: Female
  Weight: 55.79 kg

DRUGS (1)
  1. NEXPLANON [Suspect]
     Active Substance: ETONOGESTREL
     Route: 023
     Dates: start: 20200218, end: 20200219

REACTIONS (2)
  - Device dislocation [None]
  - Implant site pain [None]

NARRATIVE: CASE EVENT DATE: 20200219
